FAERS Safety Report 12611217 (Version 1)
Quarter: 2016Q3

REPORT INFORMATION
  Report Type: Spontaneous
  Country: JP (occurrence: JP)
  Receive Date: 20160801
  Receipt Date: 20160801
  Transmission Date: 20161109
  Serious: Yes (Hospitalization)
  Sender: FDA-Public Use
  Company Number: JP-GILEAD-2016-0198657

PATIENT
  Age: 77 Year
  Sex: Female
  Weight: 62 kg

DRUGS (14)
  1. EQUA [Concomitant]
     Active Substance: VILDAGLIPTIN
     Dosage: 1 DF, BID
  2. THYRADIN S [Concomitant]
     Active Substance: LEVOTHYROXINE SODIUM
     Dosage: 1 DF, QD
  3. COPEGUS [Suspect]
     Active Substance: RIBAVIRIN
     Indication: CHRONIC HEPATITIS C
     Dosage: 200 MG IN THE MORNING AND 400 MG IN THE EVENING
     Route: 048
     Dates: start: 20150706, end: 20150806
  4. SHAKUYAKUKANZOTO [Concomitant]
     Active Substance: HERBALS
     Dosage: 1 DF, TID
  5. HACHIMIJIOGAN [Concomitant]
     Active Substance: HERBALS
     Dosage: 1 DF, TID
  6. REBETOL [Concomitant]
     Active Substance: RIBAVIRIN
     Dosage: 200 MG, BID
     Dates: start: 20150807
  7. FERROMIA [Concomitant]
     Active Substance: FERROUS CITRATE
     Dosage: 1 DF, QD
  8. NOFLO [Concomitant]
     Dosage: 1 DF, TID
  9. COVERSYL                           /00790702/ [Concomitant]
     Active Substance: PERINDOPRIL
     Dosage: 1 DF, QD
  10. TOVIAZ [Concomitant]
     Active Substance: FESOTERODINE FUMARATE
     Dosage: 1 DF, QD
  11. DICLOD [Concomitant]
     Active Substance: DICLOFENAC SODIUM
     Dosage: 1 DF, TID
  12. SOVALDI [Suspect]
     Active Substance: SOFOSBUVIR
     Indication: CHRONIC HEPATITIS C
     Dosage: 1 DF, QD
     Route: 048
     Dates: start: 20150706
  13. EPADEL-S [Concomitant]
     Active Substance: ICOSAPENT ETHYL
     Dosage: 3 DF, UNK
  14. OLMETEC [Concomitant]
     Active Substance: OLMESARTAN MEDOXOMIL
     Dosage: 1 DF, QD

REACTIONS (1)
  - Iron deficiency anaemia [Recovering/Resolving]

NARRATIVE: CASE EVENT DATE: 20150803
